FAERS Safety Report 17043792 (Version 1)
Quarter: 2019Q4

REPORT INFORMATION
  Report Type: Spontaneous
  Country: US (occurrence: US)
  Receive Date: 20191115
  Receipt Date: 20191115
  Transmission Date: 20200122
  Serious: Yes (Hospitalization)
  Sender: FDA-Public Use
  Company Number: None

PATIENT
  Age: 66 Year
  Sex: Female
  Weight: 66.2 kg

DRUGS (1)
  1. PACLITAXEL. [Suspect]
     Active Substance: PACLITAXEL
     Indication: BREAST CANCER
     Dosage: ?          OTHER FREQUENCY:WEEKLY;?
     Route: 042
     Dates: start: 20191110

REACTIONS (8)
  - Blood pressure decreased [None]
  - Tremor [None]
  - Body temperature increased [None]
  - Infusion related reaction [None]
  - Chest discomfort [None]
  - Throat tightness [None]
  - Defaecation urgency [None]
  - Hyperhidrosis [None]

NARRATIVE: CASE EVENT DATE: 20191110
